FAERS Safety Report 4268779-X (Version None)
Quarter: 2004Q1

REPORT INFORMATION
  Report Type: 
  Country: None (occurrence: None)
  Receive Date: 20040112
  Receipt Date: 20040112
  Transmission Date: 20041129
  Serious: Yes (Hospitalization)
  Sender: FDA-Public Use
  Company Number: None

PATIENT
  Age: 54 Year
  Sex: Female
  Weight: 58.9676 kg

DRUGS (5)
  1. LARIAM [Suspect]
     Dosage: ONE TIME ORAL
     Route: 048
     Dates: start: 20031218, end: 20031218
  2. REGLAN [Concomitant]
  3. PREVACID [Concomitant]
  4. LEVAQUEN [Concomitant]
  5. ANTIBIOTIC [Concomitant]

REACTIONS (3)
  - ANXIETY [None]
  - CONVULSION [None]
  - DEPRESSION [None]
